FAERS Safety Report 10510329 (Version 2)
Quarter: 2014Q4

REPORT INFORMATION
  Report Type: Spontaneous
  Country: BR (occurrence: BR)
  Receive Date: 20141010
  Receipt Date: 20141121
  Transmission Date: 20150528
  Serious: Yes (Hospitalization, Other)
  Sender: FDA-Public Use
  Company Number: BR-JNJFOC-20141003889

PATIENT
  Sex: Female

DRUGS (1)
  1. SIMPONI [Suspect]
     Active Substance: GOLIMUMAB
     Indication: RHEUMATOID ARTHRITIS
     Route: 058

REACTIONS (6)
  - Hospitalisation [Unknown]
  - Lip and/or oral cavity cancer [Unknown]
  - Bacterial infection [Unknown]
  - Phlebitis [Unknown]
  - Obesity surgery [Unknown]
  - Drug ineffective [Unknown]
